FAERS Safety Report 20771924 (Version 1)
Quarter: 2022Q2

REPORT INFORMATION
  Report Type: Spontaneous
  Country: US (occurrence: US)
  Receive Date: 20220501
  Receipt Date: 20220501
  Transmission Date: 20220721
  Serious: No
  Sender: FDA-Public Use
  Company Number: US-ELI_LILLY_AND_COMPANY-US202204012447

PATIENT
  Sex: Male

DRUGS (4)
  1. BASAGLAR [Suspect]
     Active Substance: INSULIN GLARGINE
     Indication: Diabetes mellitus
     Dosage: 17 U, EACH EVENING (NIGHT)
     Route: 058
     Dates: start: 20220214
  2. BASAGLAR [Suspect]
     Active Substance: INSULIN GLARGINE
     Indication: Diabetes mellitus
     Dosage: 17 U, EACH EVENING (NIGHT)
     Route: 058
     Dates: start: 20220214
  3. BASAGLAR [Suspect]
     Active Substance: INSULIN GLARGINE
     Dosage: 17 U, EACH EVENING (NIGHT)
     Route: 058
     Dates: start: 20220214
  4. BASAGLAR [Suspect]
     Active Substance: INSULIN GLARGINE
     Dosage: 17 U, EACH EVENING (NIGHT)
     Route: 058
     Dates: start: 20220214

REACTIONS (2)
  - Injection site pain [Unknown]
  - Product storage error [Unknown]
